FAERS Safety Report 5720692-4 (Version None)
Quarter: 2008Q2

REPORT INFORMATION
  Report Type: 
  Country: None (occurrence: None)
  Receive Date: 20080429
  Receipt Date: 20080424
  Transmission Date: 20081010
  Serious: Yes (Hospitalization)
  Sender: FDA-Public Use
  Company Number: GR-JNJFOC-20080406181

PATIENT
  Sex: Male

DRUGS (4)
  1. RISPERDAL CONSTA [Suspect]
     Indication: SCHIZOPHRENIA
  2. HALOPERIDOL [Suspect]
     Indication: PSYCHOTIC DISORDER
  3. AMISULPRIDE [Suspect]
     Indication: PSYCHOTIC DISORDER
  4. BIPERIDINE [Concomitant]
     Indication: PSYCHOTIC DISORDER

REACTIONS (2)
  - AGGRESSION [None]
  - PARANOIA [None]
